FAERS Safety Report 4678313-8 (Version None)
Quarter: 2005Q2

REPORT INFORMATION
  Report Type: 
  Country: None (occurrence: None)
  Receive Date: 20050531
  Receipt Date: 20050531
  Transmission Date: 20051028
  Serious: Yes (Other)
  Sender: FDA-Public Use
  Company Number: None

PATIENT
  Age: 38 Year
  Sex: Female
  Weight: 76.2 kg

DRUGS (3)
  1. LIPITOR [Suspect]
     Indication: HYPERLIPIDAEMIA
     Dosage: ONE 10 MG TAB DAILY ORAL
     Route: 048
     Dates: start: 20050429, end: 20050523
  2. AMBIEN [Concomitant]
  3. PROZAC [Concomitant]

REACTIONS (7)
  - ABDOMINAL DISTENSION [None]
  - ABDOMINAL PAIN [None]
  - ASTHENIA [None]
  - DIZZINESS [None]
  - FLATULENCE [None]
  - INFLUENZA LIKE ILLNESS [None]
  - MYALGIA [None]
